FAERS Safety Report 9682487 (Version 1)
Quarter: 2013Q4

REPORT INFORMATION
  Report Type: Report from Study
  Country: CA (occurrence: CA)
  Receive Date: 20131112
  Receipt Date: 20131112
  Transmission Date: 20140711
  Serious: Yes (Hospitalization)
  Sender: FDA-Public Use
  Company Number: CA-JNJFOC-20131101839

PATIENT
  Age: 35 Year
  Sex: Female
  Weight: 54.1 kg

DRUGS (1)
  1. REMICADE [Suspect]
     Indication: CROHN^S DISEASE
     Dosage: 300 MG AND 400 MG ALTERNATING EVERY 4 WEEKS
     Route: 042
     Dates: start: 20090210

REACTIONS (3)
  - Crohn^s disease [Recovering/Resolving]
  - Blood potassium decreased [Unknown]
  - Weight decreased [Unknown]
